FAERS Safety Report 8089889-5 (Version None)
Quarter: 2012Q1

REPORT INFORMATION
  Report Type: 
  Country: None (occurrence: None)
  Receive Date: 20120129
  Receipt Date: 20111020
  Transmission Date: 20120608
  Serious: No
  Sender: FDA-Public Use
  Company Number: US-ABBOTT-11P-163-0867260-00

PATIENT
  Age: 58 Year
  Sex: Female

DRUGS (7)
  1. PREDNISONE TAB [Concomitant]
     Indication: CROHN'S DISEASE
  2. DICYCLOMINE [Concomitant]
     Indication: ABDOMINAL PAIN
  3. HUMIRA [Suspect]
     Dosage: TODAY
  4. ATENOLOL [Concomitant]
     Indication: HYPERTENSION
  5. HUMIRA [Suspect]
     Indication: CROHN'S DISEASE
     Dates: start: 20111006, end: 20111006
  6. SIMVASTATIN [Concomitant]
     Indication: BLOOD CHOLESTEROL
  7. ASACOL [Concomitant]
     Indication: CROHN'S DISEASE

REACTIONS (1)
  - INJECTION SITE PAIN [None]
